FAERS Safety Report 9515022 (Version 1)
Quarter: 2013Q1

REPORT INFORMATION
  Report Type: Spontaneous
  Country: US (occurrence: None)
  Receive Date: 20130305
  Receipt Date: 20130305
  Transmission Date: 20140127
  Serious: Yes (Hospitalization)
  Sender: FDA-Public Use
  Company Number: 163-21880-12121040

PATIENT
  Age: 84 Year
  Sex: Female
  Weight: 66.68 kg

DRUGS (7)
  1. REVLIMID [Suspect]
     Indication: MYELODYSPLASTIC SYNDROME
     Route: 048
     Dates: start: 20121001
  2. DIGOXIN (DIGOXIN) [Concomitant]
  3. CAPTOPRIL (CAPTOPRIL) [Concomitant]
  4. LEVOTHYROXINE (LEVOTHYROXINE) [Concomitant]
  5. VIT B6 (PYRIDOXINE HYDROCHLORIDE) [Concomitant]
  6. VIT B12 (CYANOCOBALAMIN) [Concomitant]
  7. PROCRIT [Concomitant]

REACTIONS (5)
  - Haemoglobin decreased [None]
  - Platelet count decreased [None]
  - Depression [None]
  - Asthenia [None]
  - Decreased appetite [None]
